FAERS Safety Report 13727640 (Version 1)
Quarter: 2017Q3

REPORT INFORMATION
  Report Type: Spontaneous
  Country: IT (occurrence: IT)
  Receive Date: 20170707
  Receipt Date: 20170707
  Transmission Date: 20171127
  Serious: Yes (Hospitalization)
  Sender: FDA-Public Use
  Company Number: IT-BRISTOL-MYERS SQUIBB COMPANY-BMS-2017-057094

PATIENT
  Age: 79 Year
  Sex: Male

DRUGS (3)
  1. MICARDIS [Suspect]
     Active Substance: TELMISARTAN
     Indication: HYPERTENSION
     Dosage: 1 UNIT, UNK
     Route: 048
     Dates: start: 20170101, end: 20170515
  2. COUMADIN [Suspect]
     Active Substance: WARFARIN SODIUM
     Indication: ATRIAL FIBRILLATION
     Dosage: 1 UNIT, UNK
     Route: 048
     Dates: start: 20170101, end: 20170515
  3. AMLODIPINE [Suspect]
     Active Substance: AMLODIPINE BESYLATE
     Indication: HYPERTENSION
     Dosage: 1 UNIT, UNK
     Route: 048
     Dates: start: 20170101, end: 20170515

REACTIONS (3)
  - Head injury [Unknown]
  - Joint injury [Unknown]
  - Presyncope [Unknown]

NARRATIVE: CASE EVENT DATE: 20170515
